FAERS Safety Report 13389018 (Version 2)
Quarter: 2017Q2

REPORT INFORMATION
  Report Type: Spontaneous
  Country: US (occurrence: US)
  Receive Date: 20170330
  Receipt Date: 20170414
  Transmission Date: 20170830
  Serious: Yes (Other)
  Sender: FDA-Public Use
  Company Number: US-PFIZER INC-2017132069

PATIENT
  Age: 83 Year
  Sex: Female

DRUGS (19)
  1. NOREPINEPHRINE BITARTRATE. [Suspect]
     Active Substance: NOREPINEPHRINE BITARTRATE
     Indication: CAROTID ENDARTERECTOMY
     Dosage: SEVERAL BOLUSES RANGING FROM 8-32 MCG
     Route: 040
  2. GLYCOPYRROLATE /00196201/ [Concomitant]
     Active Substance: GLYCOPYRRONIUM
     Indication: HYPOTENSION
  3. EPHEDRINE SULFATE. [Suspect]
     Active Substance: EPHEDRINE SULFATE
     Dosage: 10 MG, UNK
  4. OLMESARTAN [Concomitant]
     Active Substance: OLMESARTAN
     Dosage: UNK
  5. PHENYLEPHRINE HCL [Suspect]
     Active Substance: PHENYLEPHRINE HYDROCHLORIDE
     Indication: CAROTID ENDARTERECTOMY
     Dosage: 80 UG, UNK
     Route: 042
  6. ETOMIDATE. [Concomitant]
     Active Substance: ETOMIDATE
     Indication: INDUCTION OF ANAESTHESIA
  7. EPHEDRINE SULFATE. [Suspect]
     Active Substance: EPHEDRINE SULFATE
     Indication: CAROTID ENDARTERECTOMY
     Dosage: 50 MG, WITHIN 60 MINUTES
     Route: 040
  8. LIDOCAINE. [Concomitant]
     Active Substance: LIDOCAINE
     Indication: INDUCTION OF ANAESTHESIA
     Dosage: UNK
  9. ALENDRONATE [Concomitant]
     Active Substance: ALENDRONATE SODIUM
     Dosage: UNK
  10. ASPIRIN /00002701/ [Concomitant]
     Active Substance: ASPIRIN
     Dosage: UNK
  11. PHENYLEPHRINE HCL [Suspect]
     Active Substance: PHENYLEPHRINE HYDROCHLORIDE
     Dosage: 75 MCG/MIN
  12. MIDAZOLAM [Concomitant]
     Active Substance: MIDAZOLAM HYDROCHLORIDE
     Indication: SEDATION
     Dosage: UNK
  13. PHENYLEPHRINE HCL [Suspect]
     Active Substance: PHENYLEPHRINE HYDROCHLORIDE
     Dosage: 25 MCG/MIN
  14. VASOPRESSIN. [Suspect]
     Active Substance: VASOPRESSIN
     Indication: CAROTID ENDARTERECTOMY
     Dosage: 0.5 UNIT BOLUSES TWICE
     Route: 040
  15. VASOPRESSIN. [Suspect]
     Active Substance: VASOPRESSIN
     Dosage: INFUSION OF 2 UNIT/HOUR
  16. FENTANYL. [Concomitant]
     Active Substance: FENTANYL
     Indication: SEDATION
     Dosage: UNK
  17. VECURONIUM [Concomitant]
     Active Substance: VECURONIUM BROMIDE
     Indication: INDUCTION OF ANAESTHESIA
     Dosage: UNK
  18. ROSUVASTATIN. [Concomitant]
     Active Substance: ROSUVASTATIN
     Dosage: UNK
  19. GLYCOPYRROLATE /00196201/ [Concomitant]
     Active Substance: GLYCOPYRRONIUM
     Indication: BRADYCARDIA
     Dosage: 0.2 MG, UNK

REACTIONS (2)
  - Cardiac failure [Recovered/Resolved]
  - Stress cardiomyopathy [Unknown]
